FAERS Safety Report 19621386 (Version 1)
Quarter: 2021Q3

REPORT INFORMATION
  Report Type: Report from Study
  Country: CH (occurrence: CH)
  Receive Date: 20210728
  Receipt Date: 20210728
  Transmission Date: 20211014
  Serious: Yes (Death, Other)
  Sender: FDA-Public Use
  Company Number: CH-PFIZER INC-2021642554

PATIENT

DRUGS (1)
  1. METHOTREXATE SODIUM. [Suspect]
     Active Substance: METHOTREXATE SODIUM
     Dosage: 10 MG, DAILY

REACTIONS (4)
  - Drug-induced liver injury [Fatal]
  - Medication error [Unknown]
  - Pancytopenia [Unknown]
  - Gastrointestinal inflammation [Unknown]
